FAERS Safety Report 9899478 (Version 2)
Quarter: 2014Q1

REPORT INFORMATION
  Report Type: Spontaneous
  Country: CO (occurrence: CO)
  Receive Date: 20140214
  Receipt Date: 20140214
  Transmission Date: 20141002
  Serious: Yes (Other)
  Sender: FDA-Public Use
  Company Number: CO-PFIZER INC-2013165917

PATIENT
  Age: 58 Year
  Sex: Male

DRUGS (1)
  1. CARDURAN [Suspect]
     Indication: PROSTATIC DISORDER
     Dosage: 4 MG, DAILY
     Route: 048
     Dates: start: 2010, end: 20131204

REACTIONS (4)
  - Prostatic disorder [Unknown]
  - Dysuria [Not Recovered/Not Resolved]
  - Urinary tract infection [Recovering/Resolving]
  - Drug ineffective [Not Recovered/Not Resolved]
